FAERS Safety Report 4467748-4 (Version None)
Quarter: 2004Q4

REPORT INFORMATION
  Report Type: 
  Country: None (occurrence: None)
  Receive Date: 20041001
  Receipt Date: 20040915
  Transmission Date: 20050328
  Serious: Yes (Hospitalization)
  Sender: FDA-Public Use
  Company Number: DSA_24997_2004

PATIENT
  Age: 80 Year
  Sex: Female

DRUGS (16)
  1. DILTIAZEM HCL [Suspect]
     Indication: ATRIAL FIBRILLATION
     Dosage: 180 MG Q DAY PO
     Route: 048
     Dates: end: 20040706
  2. DILTIAZEM HCL [Suspect]
     Indication: ATRIAL FLUTTER
     Dosage: 180 MG Q DAY PO
     Route: 048
     Dates: end: 20040706
  3. DIGOXIN [Suspect]
     Indication: ATRIAL FIBRILLATION
     Dosage: 0.25 MG Q DAY PO
     Route: 048
  4. DIGOXIN [Suspect]
     Indication: ATRIAL FLUTTER
     Dosage: 0.25 MG Q DAY PO
     Route: 048
  5. COVERSYL [Suspect]
     Dosage: 4 MG Q DAY PO
     Route: 048
  6. VIOXX [Suspect]
     Dosage: 25 MG Q DAY PO
     Route: 048
     Dates: start: 20040611, end: 20040706
  7. PREVISCAN [Concomitant]
  8. LEVOTHYROX [Concomitant]
  9. AMLOR [Concomitant]
  10. LASILIX [Concomitant]
  11. DIFFU K [Concomitant]
  12. ZYLORIC ^FAES^ [Concomitant]
  13. RELVENE [Concomitant]
  14. TAHOR [Concomitant]
  15. EUPANTOL [Concomitant]
  16. FIXICAL VITAMINE D3 [Concomitant]

REACTIONS (24)
  - BLOOD CREATININE INCREASED [None]
  - BLOOD GLUCOSE INCREASED [None]
  - BLOOD POTASSIUM INCREASED [None]
  - BLOOD SODIUM INCREASED [None]
  - BLOOD UREA INCREASED [None]
  - BRADYCARDIA [None]
  - C-REACTIVE PROTEIN INCREASED [None]
  - CREATININE RENAL CLEARANCE DECREASED [None]
  - DRUG INTERACTION [None]
  - ELECTROCARDIOGRAM T WAVE INVERSION [None]
  - HYPOAESTHESIA [None]
  - INTERNATIONAL NORMALISED RATIO INCREASED [None]
  - LOSS OF CONSCIOUSNESS [None]
  - MYOGLOBIN BLOOD INCREASED [None]
  - NAUSEA [None]
  - NODAL ARRHYTHMIA [None]
  - OVERDOSE [None]
  - PALLOR [None]
  - PERIPHERAL COLDNESS [None]
  - PERIPHERAL ISCHAEMIA [None]
  - PLATELET DISORDER [None]
  - RENAL FAILURE [None]
  - VOMITING [None]
  - WHITE BLOOD CELL DISORDER [None]
